FAERS Safety Report 5379374-3 (Version None)
Quarter: 2007Q3

REPORT INFORMATION
  Report Type: 
  Country: None (occurrence: None)
  Receive Date: 20070702
  Receipt Date: 20070619
  Transmission Date: 20080115
  Serious: Yes (Hospitalization, Other)
  Sender: FDA-Public Use
  Company Number: 2007AL002511

PATIENT
  Age: 23 Year
  Sex: Female

DRUGS (1)
  1. PROPYLTHIOURACIL [Suspect]
     Indication: BASEDOW'S DISEASE
     Dosage: 100 MG;TID;PO
     Route: 048

REACTIONS (21)
  - AORTIC VALVE INCOMPETENCE [None]
  - BLOOD PH INCREASED [None]
  - BLOOD THYROID STIMULATING HORMONE DECREASED [None]
  - CAESAREAN SECTION [None]
  - CARDIAC MURMUR [None]
  - CARDIOMEGALY [None]
  - CHEST X-RAY ABNORMAL [None]
  - DRUG EXPOSURE DURING PREGNANCY [None]
  - EJECTION FRACTION DECREASED [None]
  - GOITRE [None]
  - HAEMATURIA [None]
  - HAEMOGLOBIN DECREASED [None]
  - HEART RATE INCREASED [None]
  - MITRAL VALVE INCOMPETENCE [None]
  - OEDEMA PERIPHERAL [None]
  - PROTEIN URINE [None]
  - PULMONARY ALVEOLAR HAEMORRHAGE [None]
  - PYREXIA [None]
  - RED BLOOD CELL SEDIMENTATION RATE INCREASED [None]
  - THYROXINE FREE INCREASED [None]
  - TRICUSPID VALVE INCOMPETENCE [None]
